FAERS Safety Report 5878031-4 (Version None)
Quarter: 2008Q3

REPORT INFORMATION
  Report Type: 
  Country: None (occurrence: None)
  Receive Date: 20080911
  Receipt Date: 20080903
  Transmission Date: 20090109
  Serious: Yes (Other)
  Sender: FDA-Public Use
  Company Number: DE-JNJFOC-20080900749

PATIENT
  Age: 25 Year
  Sex: Female

DRUGS (1)
  1. IONSYS [Suspect]
     Indication: ACCIDENTAL EXPOSURE
     Route: 044

REACTIONS (9)
  - ACCIDENTAL EXPOSURE [None]
  - ANAPHYLACTIC SHOCK [None]
  - BLOOD PRESSURE SYSTOLIC DECREASED [None]
  - DISTURBANCE IN ATTENTION [None]
  - DIZZINESS [None]
  - DYSPNOEA [None]
  - NAUSEA [None]
  - PARAESTHESIA [None]
  - TACHYCARDIA [None]
